FAERS Safety Report 8847574 (Version 1)
Quarter: 2012Q4

REPORT INFORMATION
  Report Type: 
  Country: US (occurrence: US)
  Receive Date: 20121018
  Receipt Date: 20121018
  Transmission Date: 20130627
  Serious: Yes (Other)
  Sender: FDA-Public Use
  Company Number: US-TEVA-365521USA

PATIENT

DRUGS (3)
  1. TREANDA [Suspect]
  2. ALLOPURINOL [Concomitant]
  3. UNKNOWN CANCER AGENT [Concomitant]

REACTIONS (1)
  - Toxic epidermal necrolysis [Unknown]
